FAERS Safety Report 15727748 (Version 2)
Quarter: 2018Q4

REPORT INFORMATION
  Report Type: Spontaneous
  Country: US (occurrence: US)
  Receive Date: 20181217
  Receipt Date: 20181221
  Transmission Date: 20190205
  Serious: No
  Sender: FDA-Public Use
  Company Number: US-PFIZER INC-2018026454

PATIENT
  Age: 76 Year
  Sex: Male

DRUGS (1)
  1. SOMAVERT [Suspect]
     Active Substance: PEGVISOMANT
     Dosage: 30 MG, DAILY
     Route: 058

REACTIONS (4)
  - Blood creatinine decreased [Unknown]
  - Blood parathyroid hormone increased [Unknown]
  - Product dose omission [Unknown]
  - Blood urea increased [Unknown]
